FAERS Safety Report 5119426-6 (Version None)
Quarter: 2006Q3

REPORT INFORMATION
  Report Type: 
  Country: None (occurrence: None)
  Receive Date: 20060928
  Receipt Date: 20060910
  Transmission Date: 20061208
  Serious: Yes (Hospitalization, Other)
  Sender: FDA-Public Use
  Company Number: 2006SP001567

PATIENT
  Age: 42 Year
  Sex: Female

DRUGS (7)
  1. PEG-INTRON [Suspect]
     Indication: HEPATITIS C
     Dates: start: 20051004
  2. REBETOL [Suspect]
     Indication: HEPATITIS C
     Dosage: PO
     Route: 048
     Dates: start: 20051004
  3. INDERAL (CON.) [Concomitant]
  4. PAXIL (CON.) [Concomitant]
  5. SYNTHROID (CON.) [Concomitant]
  6. TRAZODONE (CON.) [Concomitant]
  7. VISTARIL (CON.) [Concomitant]

REACTIONS (2)
  - CHOLELITHIASIS [None]
  - THYROID DISORDER [None]
